FAERS Safety Report 8989938 (Version 1)
Quarter: 2012Q4

REPORT INFORMATION
  Report Type: 
  Country: AU (occurrence: AU)
  Receive Date: 20121228
  Receipt Date: 20121228
  Transmission Date: 20130627
  Serious: Yes (Other)
  Sender: FDA-Public Use
  Company Number: AU-PFIZER INC-2012326317

PATIENT
  Age: 14 Year
  Sex: Male

DRUGS (6)
  1. DEXAMETHASONE SODIUM PHOSPHATE [Suspect]
     Indication: GLIOBLASTOMA
     Dosage: UNK
     Dates: start: 200910
  2. DEXAMETHASONE SODIUM PHOSPHATE [Suspect]
     Dosage: 12 mg, UNK
     Dates: start: 2010
  3. IRINOTECAN HCL [Suspect]
     Indication: GLIOBLASTOMA
     Dosage: 125 mg/m2, every 2 weeks
     Dates: start: 201004, end: 201007
  4. BEVACIZUMAB [Suspect]
     Indication: GLIOBLASTOMA
     Dosage: 5mg/kg, every 2 weeks
     Dates: start: 201004, end: 201007
  5. TEMOZOLOMIDE [Concomitant]
     Dosage: UNK
  6. PROCARBAZINE [Concomitant]
     Dosage: UNK

REACTIONS (3)
  - Abdominal wound dehiscence [Not Recovered/Not Resolved]
  - Neurological symptom [Not Recovered/Not Resolved]
  - Asthenia [Not Recovered/Not Resolved]
